FAERS Safety Report 6022470-8 (Version None)
Quarter: 2008Q4

REPORT INFORMATION
  Report Type: 
  Country: None (occurrence: None)
  Receive Date: 20081230
  Receipt Date: 20081216
  Transmission Date: 20090506
  Serious: Yes (Hospitalization)
  Sender: FDA-Public Use
  Company Number: US-CELGENEUS-163-21880-08110737

PATIENT
  Sex: Male
  Weight: 79.45 kg

DRUGS (16)
  1. REVLIMID [Suspect]
     Indication: MULTIPLE MYELOMA
     Route: 048
     Dates: start: 20081016, end: 20081101
  2. LANTUS [Concomitant]
     Indication: DRUG USE FOR UNKNOWN INDICATION
     Dosage: 80-90 UNITS
     Route: 065
  3. HUMALOG [Concomitant]
     Indication: DRUG USE FOR UNKNOWN INDICATION
     Dosage: 10-20 UNITS
     Route: 065
  4. TRAMADOL [Concomitant]
     Indication: PAIN
  5. DURAGESIC-100 [Concomitant]
     Indication: PAIN
     Route: 062
  6. DURAGESIC-100 [Concomitant]
     Route: 062
  7. MORPHINE SULFATE [Concomitant]
     Indication: PAIN
     Route: 065
  8. ADVIL LIQUI-GELS [Concomitant]
     Indication: PAIN
     Route: 065
  9. ALTACE [Concomitant]
     Indication: DRUG USE FOR UNKNOWN INDICATION
     Route: 065
  10. RAMIPRIL [Concomitant]
     Indication: DRUG USE FOR UNKNOWN INDICATION
     Route: 065
  11. TEGRETOL [Concomitant]
     Indication: DRUG USE FOR UNKNOWN INDICATION
     Route: 065
  12. ABILIFY [Concomitant]
     Indication: DRUG USE FOR UNKNOWN INDICATION
     Route: 065
  13. VELCADE [Concomitant]
     Indication: DRUG USE FOR UNKNOWN INDICATION
     Route: 065
  14. ARANESP [Concomitant]
     Indication: DRUG USE FOR UNKNOWN INDICATION
     Route: 065
  15. DEXAMETHASONE [Concomitant]
     Indication: DRUG USE FOR UNKNOWN INDICATION
     Route: 065
  16. DEXAMETHASONE [Concomitant]
     Route: 065

REACTIONS (4)
  - COLITIS ISCHAEMIC [None]
  - CONSTIPATION [None]
  - DEHYDRATION [None]
  - RECTAL HAEMORRHAGE [None]
